FAERS Safety Report 24690725 (Version 1)
Quarter: 2024Q4

REPORT INFORMATION
  Report Type: Spontaneous
  Country: HR (occurrence: HR)
  Receive Date: 20241203
  Receipt Date: 20241203
  Transmission Date: 20250115
  Serious: Yes (Other)
  Sender: NOVARTIS
  Company Number: HR-002147023-NVSC2024HR226634

PATIENT
  Sex: Female

DRUGS (2)
  1. TASIGNA [Suspect]
     Active Substance: NILOTINIB
     Indication: Chronic myeloid leukaemia
     Dosage: 400 MG (2X1)
     Route: 065
     Dates: start: 201202, end: 202410
  2. TASIGNA [Suspect]
     Active Substance: NILOTINIB
     Dosage: 200 MG (2X1)
     Route: 065
     Dates: start: 202410, end: 202411

REACTIONS (7)
  - Peripheral artery occlusion [Unknown]
  - Stenosis [Unknown]
  - Vascular stent stenosis [Unknown]
  - Restenosis [Unknown]
  - Dizziness [Unknown]
  - Arthralgia [Unknown]
  - Intermittent claudication [Unknown]

NARRATIVE: CASE EVENT DATE: 20130901
